FAERS Safety Report 4307499-X (Version None)
Quarter: 2004Q1

REPORT INFORMATION
  Report Type: 
  Country: None (occurrence: None)
  Receive Date: 20040226
  Receipt Date: 20040219
  Transmission Date: 20041129
  Serious: Yes (Hospitalization)
  Sender: FDA-Public Use
  Company Number: 2004200285JP

PATIENT
  Age: 50 Year
  Sex: Female

DRUGS (1)
  1. PROVERA [Suspect]
     Dosage: UNK, UNK; ORAL
     Route: 048

REACTIONS (1)
  - INTERSTITIAL LUNG DISEASE [None]
